FAERS Safety Report 17470647 (Version 3)
Quarter: 2020Q3

REPORT INFORMATION
  Report Type: Report from Study
  Country: US (occurrence: US)
  Receive Date: 20200228
  Receipt Date: 20200716
  Transmission Date: 20201102
  Serious: Yes (Hospitalization, Other)
  Sender: FDA-Public Use
  Company Number: US-AMGEN-USASP2020031538

PATIENT
  Age: 65 Year
  Sex: Female

DRUGS (4)
  1. SYNTHROID [Suspect]
     Active Substance: LEVOTHYROXINE SODIUM
     Dosage: 2 TABLET 2 TIMES PER WEEK (50 MCG)
     Route: 048
  2. PROLIA [Suspect]
     Active Substance: DENOSUMAB
     Indication: OSTEOPOROSIS POSTMENOPAUSAL
     Dosage: UNK UNK, Q6MO
     Route: 065
  3. RABEPRAZOLE [Concomitant]
     Active Substance: RABEPRAZOLE
     Dosage: 20 MILLIGRAM, QD
     Route: 065
  4. SYNTHROID [Suspect]
     Active Substance: LEVOTHYROXINE SODIUM
     Indication: HYPOTHYROIDISM
     Dosage: 1 TAB BY MOUTH 5 DAY PER WEEK (50 MCG)
     Route: 048

REACTIONS (6)
  - Irritability [Unknown]
  - Unevaluable event [Unknown]
  - Kyphosis [Unknown]
  - Fall [Recovered/Resolved]
  - Intestinal obstruction [Recovered/Resolved]
  - Spinal deformity [Unknown]

NARRATIVE: CASE EVENT DATE: 201806
